FAERS Safety Report 9858353 (Version 1)
Quarter: 2014Q1

REPORT INFORMATION
  Report Type: Spontaneous
  Country: FR (occurrence: FR)
  Receive Date: 20140131
  Receipt Date: 20140131
  Transmission Date: 20141002
  Serious: Yes (Other)
  Sender: FDA-Public Use
  Company Number: FR-009507513-1401FRA009883

PATIENT
  Age: 65 Year
  Sex: Female
  Weight: 85 kg

DRUGS (10)
  1. VICTRELIS [Suspect]
     Dosage: 2400 MG, QD
     Route: 048
     Dates: start: 20110428, end: 20110507
  2. VIRAFERONPEG [Suspect]
     Dosage: 1.5 MICROGRAM PER KILOGRAM, UNK
     Route: 058
     Dates: start: 20110318, end: 20110506
  3. REBETOL [Suspect]
     Dosage: 1200 MG, QD
     Route: 048
     Dates: start: 20110318, end: 20110507
  4. PROPRANOLOL HYDROCHLORIDE [Concomitant]
     Indication: VARICES OESOPHAGEAL
     Dosage: 160 MG, QD
     Dates: start: 20100202
  5. FLECAINE [Concomitant]
     Dosage: 100 MG, BID
     Dates: start: 20110222
  6. LASILIX [Concomitant]
     Dosage: 40 UNK, UNK
     Dates: start: 20090623
  7. DIFFU-K [Concomitant]
     Indication: HYPOKALAEMIA
     Dosage: 600 UNK, UNK
     Dates: start: 20090623
  8. PREDNISOLONE [Concomitant]
     Indication: PAIN
     Dosage: 20 MG, BID
     Dates: start: 20110124
  9. DAFLON (DIOSMIN) [Concomitant]
     Dosage: 375 MG, TID
     Dates: start: 20100902
  10. SULFARLEM [Concomitant]
     Indication: DRY MOUTH
     Dosage: 25 MG, TID
     Dates: start: 20110420

REACTIONS (4)
  - Dizziness [Recovered/Resolved]
  - Asthenia [Recovered/Resolved]
  - Vomiting [Recovered/Resolved]
  - Malaise [Recovered/Resolved]
